FAERS Safety Report 9732812 (Version 1)
Quarter: 2013Q4

REPORT INFORMATION
  Report Type: Report from Study
  Country: JP (occurrence: JP)
  Receive Date: 20131205
  Receipt Date: 20131205
  Transmission Date: 20140711
  Serious: Yes (Hospitalization)
  Sender: FDA-Public Use
  Company Number: JP-PFIZER INC-2013343467

PATIENT
  Age: 35 Year
  Sex: Female
  Weight: 34.5 kg

DRUGS (13)
  1. REVATIO [Suspect]
     Indication: PULMONARY ARTERIAL HYPERTENSION
     Dosage: 10 MG, 3X/DAY
     Route: 048
     Dates: start: 20100626, end: 20100627
  2. REVATIO [Suspect]
     Dosage: 20 MG, 3X/DAY
     Route: 048
     Dates: start: 20100628, end: 20100708
  3. HALFDIGOXIN [Concomitant]
     Dosage: UNK
     Route: 048
  4. ASPARA K [Concomitant]
     Dosage: UNK
     Route: 048
  5. ALDACTONE-A [Concomitant]
     Dosage: UNK
     Route: 048
  6. LASIX [Concomitant]
     Dosage: UNK
     Route: 048
  7. MUCOSOLVAN [Concomitant]
     Indication: PRODUCTIVE COUGH
     Dosage: UNK
     Route: 048
  8. ARTIST [Concomitant]
     Dosage: UNK
     Route: 048
  9. ZYLORIC ^GLAXO WELLCOME^ [Concomitant]
     Dosage: UNK
     Route: 048
  10. FLUITRAN [Concomitant]
     Dosage: UNK
     Route: 048
  11. WARFARIN [Concomitant]
     Dosage: UNK
     Route: 048
  12. FERROMIA [Concomitant]
     Indication: ANAEMIA
     Dosage: UNK
     Route: 048
  13. MUCOSTA [Concomitant]
     Indication: PRODUCTIVE COUGH
     Dosage: UNK
     Route: 048

REACTIONS (1)
  - Interstitial lung disease [Recovering/Resolving]
